FAERS Safety Report 7120886-X (Version None)
Quarter: 2010Q4

REPORT INFORMATION
  Report Type: 
  Country: None (occurrence: None)
  Receive Date: 20101124
  Receipt Date: 20091106
  Transmission Date: 20110411
  Serious: No
  Sender: FDA-Public Use
  Company Number: US-PFIZER INC-2009295705

PATIENT
  Sex: Male

DRUGS (2)
  1. TIKOSYN [Suspect]
  2. MAGNESIUM CITRATE [Interacting]

REACTIONS (2)
  - CONSTIPATION [None]
  - DRUG INTERACTION [None]
